FAERS Safety Report 14555459 (Version 2)
Quarter: 2018Q4

REPORT INFORMATION
  Report Type: Report from Study
  Country: None (occurrence: BR)
  Receive Date: 20180220
  Receipt Date: 20181212
  Transmission Date: 20190204
  Serious: Yes (Other)
  Sender: FDA-Public Use
  Company Number: BR-ABBVIE-18K-020-2262483-00

PATIENT
  Age: 58 Year
  Sex: Female
  Weight: 107 kg

DRUGS (6)
  1. GLIFAGE [Concomitant]
     Active Substance: METFORMIN HYDROCHLORIDE
     Indication: FAT TISSUE INCREASED
     Dosage: 0.500
  2. HUMIRA [Suspect]
     Active Substance: ADALIMUMAB
     Route: 058
     Dates: start: 20170412
  3. NAPRIX D [Concomitant]
     Indication: HYPERTENSION
     Dosage: 5MG/12.5MG
  4. PANTOCAL [Concomitant]
     Indication: PROPHYLAXIS
  5. HUMIRA [Suspect]
     Active Substance: ADALIMUMAB
     Indication: PSORIATIC ARTHROPATHY
     Route: 058
     Dates: start: 20170312, end: 2017
  6. EUTHYROX [Concomitant]
     Active Substance: LEVOTHYROXINE SODIUM
     Indication: HYPOTHYROIDISM
     Dosage: 150

REACTIONS (5)
  - Hip arthroplasty [Recovered/Resolved]
  - Osteoarthritis [Unknown]
  - Joint range of motion decreased [Unknown]
  - Bone disorder [Unknown]
  - Gait disturbance [Unknown]

NARRATIVE: CASE EVENT DATE: 20180323
